FAERS Safety Report 19270533 (Version 1)
Quarter: 2021Q2

REPORT INFORMATION
  Report Type: Spontaneous
  Country: US (occurrence: US)
  Receive Date: 20210518
  Receipt Date: 20210518
  Transmission Date: 20210717
  Serious: No
  Sender: FDA-Public Use
  Company Number: US-TEVA-2021-US-1905626

PATIENT
  Age: 71 Year
  Sex: Female
  Weight: 69.85 kg

DRUGS (4)
  1. AMLODIPINE BESYLATE. [Concomitant]
     Active Substance: AMLODIPINE BESYLATE
  2. ALBUTEROL SULFATE HFA [Suspect]
     Active Substance: ALBUTEROL SULFATE
     Indication: HYPERSENSITIVITY
     Dosage: 2 PUFFS 4 TIMES DAILY AS NEEDED
     Route: 055
     Dates: start: 2021
  3. LEVOTHYROXINE. [Concomitant]
     Active Substance: LEVOTHYROXINE
  4. METOPROLOL SUCCINATE. [Concomitant]
     Active Substance: METOPROLOL SUCCINATE

REACTIONS (3)
  - Off label use [Unknown]
  - Burning sensation [Unknown]
  - Product substitution issue [Unknown]

NARRATIVE: CASE EVENT DATE: 2021
